FAERS Safety Report 13938157 (Version 1)
Quarter: 2017Q3

REPORT INFORMATION
  Report Type: Other
  Country: FR (occurrence: FR)
  Receive Date: 20170905
  Receipt Date: 20170905
  Transmission Date: 20171127
  Serious: Yes (Hospitalization)
  Sender: FDA-Public Use
  Company Number: FR-VALIDUS PHARMACEUTICALS LLC-FR-2017VAL001304

PATIENT
  Age: 84 Year
  Sex: Female

DRUGS (7)
  1. ECONAZOLE [Suspect]
     Active Substance: ECONAZOLE
     Indication: PRODUCT USED FOR UNKNOWN INDICATION
     Dosage: UNK
     Dates: start: 20170727, end: 20170731
  2. DEPAMIDE [Concomitant]
     Active Substance: VALPROMIDE
     Indication: PRODUCT USED FOR UNKNOWN INDICATION
  3. ELUDRILPERIO [Concomitant]
     Indication: PRODUCT USED FOR UNKNOWN INDICATION
  4. VENLAFAXINE [Concomitant]
     Active Substance: VENLAFAXINE HYDROCHLORIDE
     Indication: PRODUCT USED FOR UNKNOWN INDICATION
  5. FUROSEMIDE. [Suspect]
     Active Substance: FUROSEMIDE
     Indication: PRODUCT USED FOR UNKNOWN INDICATION
     Dosage: UNK
     Route: 048
  6. AUGMENTIN [Suspect]
     Active Substance: AMOXICILLIN\CLAVULANATE POTASSIUM
     Indication: BRONCHITIS
     Dosage: UNK
     Route: 048
     Dates: start: 20170721, end: 20170728
  7. IMOVANE [Concomitant]
     Active Substance: ZOPICLONE
     Indication: PRODUCT USED FOR UNKNOWN INDICATION

REACTIONS (2)
  - Acute generalised exanthematous pustulosis [Recovering/Resolving]
  - Fungal infection [Recovering/Resolving]

NARRATIVE: CASE EVENT DATE: 20170731
